FAERS Safety Report 5409575-7 (Version None)
Quarter: 2007Q3

REPORT INFORMATION
  Report Type: 
  Country: None (occurrence: None)
  Receive Date: 20070809
  Receipt Date: 20070726
  Transmission Date: 20080115
  Serious: Yes (Hospitalization)
  Sender: FDA-Public Use
  Company Number: PHHO2007IL12514

PATIENT
  Age: 62 Year
  Sex: Female
  Weight: 51 kg

DRUGS (1)
  1. RECLAST [Suspect]
     Indication: OSTEOPOROSIS
     Dosage: 5 MG, UNK
     Route: 042

REACTIONS (6)
  - ANAEMIA [None]
  - BODY TEMPERATURE INCREASED [None]
  - HYPERPYREXIA [None]
  - HYPOALBUMINAEMIA [None]
  - HYPONATRAEMIA [None]
  - RED BLOOD CELL SEDIMENTATION RATE INCREASED [None]
